FAERS Safety Report 11897135 (Version 2)
Quarter: 2016Q1

REPORT INFORMATION
  Report Type: Spontaneous
  Country: PT (occurrence: PT)
  Receive Date: 20160107
  Receipt Date: 20160128
  Transmission Date: 20160526
  Serious: Yes (Other)
  Sender: FDA-Public Use
  Company Number: PT-GILEAD-2015-0184739

PATIENT
  Sex: Male
  Weight: 92 kg

DRUGS (5)
  1. METFORMIN [Concomitant]
     Active Substance: METFORMIN HYDROCHLORIDE
  2. BONALFA [Concomitant]
  3. BETAMETASONE DIPROPIONATO [Concomitant]
  4. VIREAD [Suspect]
     Active Substance: TENOFOVIR DISOPROXIL FUMARATE
     Indication: HEPATITIS B
     Dosage: UNK DF, UNK
     Route: 065
     Dates: start: 20150518
  5. TANSULOSINA [Concomitant]

REACTIONS (2)
  - Psoriasis [Recovering/Resolving]
  - Immune reconstitution inflammatory syndrome [Unknown]
